FAERS Safety Report 4599964-5 (Version None)
Quarter: 2005Q1

REPORT INFORMATION
  Report Type: 
  Country: None (occurrence: None)
  Receive Date: 20050304
  Receipt Date: 20050304
  Transmission Date: 20050727
  Serious: Yes (Life-Threatening, Disabling)
  Sender: FDA-Public Use
  Company Number: None

PATIENT
  Age: 41 Year
  Sex: Female
  Weight: 81.6475 kg

DRUGS (6)
  1. PREDNISONE TAB [Suspect]
     Indication: ASTHMA
     Dosage: 40-10 MG DAILY FOR 1 WK ORAL
     Route: 048
     Dates: start: 20040709, end: 20040715
  2. PREDNISONE TAB [Suspect]
     Indication: RHINITIS
     Dosage: 40-10 MG DAILY FOR 1 WK ORAL
     Route: 048
     Dates: start: 20040709, end: 20040715
  3. EFFEXOR XR [Concomitant]
  4. PROVIGIL [Concomitant]
  5. CLONAZEPAM [Concomitant]
  6. SEROQUEL [Concomitant]

REACTIONS (12)
  - ANXIETY [None]
  - BEREAVEMENT REACTION [None]
  - COGNITIVE DISORDER [None]
  - DEPRESSION [None]
  - DISTURBANCE IN ATTENTION [None]
  - FEELING ABNORMAL [None]
  - FEELING GUILTY [None]
  - INSOMNIA [None]
  - MEMORY IMPAIRMENT [None]
  - PSYCHOMOTOR HYPERACTIVITY [None]
  - READING DISORDER [None]
  - SUICIDAL IDEATION [None]
